FAERS Safety Report 5050247-9 (Version None)
Quarter: 2006Q2

REPORT INFORMATION
  Report Type: 
  Country: None (occurrence: None)
  Receive Date: 20060614
  Receipt Date: 20060404
  Transmission Date: 20061013
  Serious: Yes (Other)
  Sender: FDA-Public Use
  Company Number: 435294

PATIENT
  Age: 57 Year
  Sex: Female
  Weight: 56.7 kg

DRUGS (5)
  1. BONIVA [Suspect]
     Indication: OSTEOPOROSIS
     Dosage: 1 PER MONTH ORAL
     Route: 048
  2. ATROVENT MDI (IPRATROPIUM BROMIDE) [Concomitant]
  3. ADVAIR DISKUS 100/50 [Concomitant]
  4. ALBUTEROL [Concomitant]
  5. PRINIVIL [Concomitant]

REACTIONS (7)
  - ARTHRALGIA [None]
  - DISCOMFORT [None]
  - ERYTHEMA [None]
  - JOINT SWELLING [None]
  - OEDEMA [None]
  - PAIN IN EXTREMITY [None]
  - SWELLING [None]
